FAERS Safety Report 5351956-4 (Version None)
Quarter: 2007Q2

REPORT INFORMATION
  Report Type: 
  Country: None (occurrence: None)
  Receive Date: 20070611
  Receipt Date: 20070530
  Transmission Date: 20071010
  Serious: Yes (Hospitalization)
  Sender: FDA-Public Use
  Company Number: JP-JNJFOC-20070404298

PATIENT
  Sex: Female
  Weight: 66 kg

DRUGS (23)
  1. REMICADE [Suspect]
     Route: 042
  2. REMICADE [Suspect]
     Route: 042
  3. REMICADE [Suspect]
     Route: 042
  4. REMICADE [Suspect]
     Route: 042
  5. REMICADE [Suspect]
     Route: 042
  6. REMICADE [Suspect]
     Route: 042
  7. REMICADE [Suspect]
     Route: 042
  8. REMICADE [Suspect]
     Route: 042
  9. REMICADE [Suspect]
     Indication: RHEUMATOID ARTHRITIS
     Route: 042
  10. ASPIRIN [Suspect]
     Indication: DRUG USE FOR UNKNOWN INDICATION
     Route: 048
  11. LOXONIN [Concomitant]
     Route: 048
  12. LOXONIN [Concomitant]
     Indication: RHEUMATOID ARTHRITIS
     Route: 048
  13. SELBEX [Concomitant]
     Route: 048
  14. EURAX [Concomitant]
     Route: 047
  15. URSO 250 [Concomitant]
     Route: 048
  16. METHOTREXATE [Concomitant]
     Route: 048
  17. METHOTREXATE [Concomitant]
     Indication: RHEUMATOID ARTHRITIS
     Route: 048
  18. KETOPROFEN [Concomitant]
     Indication: RHEUMATOID ARTHRITIS
     Route: 047
  19. SELTOUCH [Concomitant]
     Indication: RHEUMATOID ARTHRITIS
     Route: 047
  20. FOLIAMIN [Concomitant]
     Indication: RHEUMATOID ARTHRITIS
     Route: 048
  21. ISCOTIN [Concomitant]
     Indication: ANTIBIOTIC PROPHYLAXIS
     Route: 048
  22. MOBIC [Concomitant]
     Indication: RHEUMATOID ARTHRITIS
     Route: 048
  23. ACINONE [Concomitant]
     Route: 048

REACTIONS (5)
  - GASTROINTESTINAL HAEMORRHAGE [None]
  - HAEMOGLOBIN DECREASED [None]
  - REFLUX OESOPHAGITIS [None]
  - TONSILLITIS [None]
  - WHITE BLOOD CELL COUNT DECREASED [None]
